FAERS Safety Report 24574799 (Version 1)
Quarter: 2024Q4

REPORT INFORMATION
  Report Type: Spontaneous
  Country: US (occurrence: US)
  Receive Date: 20241104
  Receipt Date: 20241104
  Transmission Date: 20250114
  Serious: No
  Sender: ROCHE
  Company Number: US-ROCHE-10000121629

PATIENT
  Sex: Female

DRUGS (10)
  1. XOLAIR PFS [Suspect]
     Active Substance: OMALIZUMAB
     Indication: Asthma
     Route: 058
  2. XOLAIR PFS [Suspect]
     Active Substance: OMALIZUMAB
  3. ESTRADIOL [Concomitant]
     Active Substance: ESTRADIOL
  4. OMEPRAZOLE [Concomitant]
     Active Substance: OMEPRAZOLE
  5. ONDANSETRON [Concomitant]
     Active Substance: ONDANSETRON
  6. NASONEX [Concomitant]
     Active Substance: MOMETASONE FUROATE
  7. HYDROCHLOROTHIAZIDE [Concomitant]
     Active Substance: HYDROCHLOROTHIAZIDE
  8. GABAPENTIN [Concomitant]
     Active Substance: GABAPENTIN
  9. LYRICA [Concomitant]
     Active Substance: PREGABALIN
  10. AZITHROMYCIN [Concomitant]
     Active Substance: AZITHROMYCIN

REACTIONS (2)
  - Off label use [Unknown]
  - No adverse event [Unknown]
